FAERS Safety Report 22520472 (Version 2)
Quarter: 2023Q2

REPORT INFORMATION
  Report Type: Spontaneous
  Country: PK (occurrence: PK)
  Receive Date: 20230605
  Receipt Date: 20230613
  Transmission Date: 20230721
  Serious: Yes (Hospitalization)
  Sender: FDA-Public Use
  Company Number: PK-PFIZER INC-PV202200126769

PATIENT
  Age: 65 Year
  Sex: Female
  Weight: 89 kg

DRUGS (7)
  1. IBRANCE [Suspect]
     Active Substance: PALBOCICLIB
     Indication: Hormone receptor positive HER2 negative breast cancer
     Dosage: 125 MG, 1X/DAY
     Dates: start: 20221220, end: 20230307
  2. IBRANCE [Suspect]
     Active Substance: PALBOCICLIB
     Dosage: 1 TABLET DAILY FOR 2 WEEKS
     Route: 048
  3. IBRANCE [Suspect]
     Active Substance: PALBOCICLIB
     Dosage: ONCE DAILY FOR 3 WEEKS; TAKE MEDICATION FOR 3 WEEKS FOLLOWED BY 1 WEEK OFF
     Route: 048
  4. ARIMIDEX [Concomitant]
     Active Substance: ANASTROZOLE
     Dosage: 1 TABLET DAILY FOR 1 MONTH
     Route: 048
     Dates: start: 20221216
  5. ZURIG [Concomitant]
     Indication: Gouty arthritis
  6. ZEEGAP [Concomitant]
     Dosage: 12 HOURLY (2 TIMES A DAY) FOR 1 MONTH; 1 IN MORNING AND EVENING 1 MONTH
     Route: 048
  7. METHYLCOBALAMIN [Concomitant]
     Active Substance: METHYLCOBALAMIN
     Dosage: 12 HOURLY (2 TIMES A DAY) FOR 1 MONTH; 1 IN MORNING AND EVENING 1 MONTH
     Route: 048

REACTIONS (10)
  - Pain [Unknown]
  - Diarrhoea [Unknown]
  - Abdominal pain [Unknown]
  - Respiratory rate increased [Unknown]
  - Glomerular filtration rate decreased [Unknown]
  - Haemoglobin decreased [Unknown]
  - Platelet count decreased [Unknown]
  - Neutrophil count decreased [Unknown]
  - Vitamin D decreased [Unknown]
  - Neoplasm progression [Unknown]
